FAERS Safety Report 6369963-1 (Version None)
Quarter: 2009Q3

REPORT INFORMATION
  Report Type: 
  Country: None (occurrence: None)
  Receive Date: 20090923
  Receipt Date: 20071112
  Transmission Date: 20100115
  Serious: Yes (Other)
  Sender: FDA-Public Use
  Company Number: US-ASTRAZENECA-2006UW06308

PATIENT
  Age: 12494 Day
  Sex: Female
  Weight: 74.8 kg

DRUGS (17)
  1. SEROQUEL [Suspect]
     Indication: SCHIZOPHRENIA
     Dosage: 100 MG TO 200 MG
     Route: 048
     Dates: start: 20040601, end: 20040801
  2. SEROQUEL [Suspect]
     Dosage: 100 MG - 200 MG
     Route: 048
     Dates: start: 20040810
  3. RISPERDAL [Suspect]
     Indication: SCHIZOPHRENIA
     Dosage: 1 MG TO 3 MG
     Dates: start: 20040501
  4. RISPERDAL [Suspect]
     Dosage: 1 MG TO 3 MG
     Dates: start: 20040901, end: 20060101
  5. RISPERDAL [Suspect]
  6. ZYPREXA [Concomitant]
     Indication: SCHIZOPHRENIA
     Dosage: 5 MG TO 10 MG
     Dates: start: 20040501
  7. ZOLOFT [Concomitant]
     Route: 048
  8. TRAZODONE [Concomitant]
     Indication: SLEEP DISORDER
     Route: 048
  9. BENZTROPINE MESYLATE [Concomitant]
  10. DICLOXACILLIN [Concomitant]
  11. IBUPROFEN [Concomitant]
  12. OXYCODONE HCL AND ACETAMINOPHEN [Concomitant]
     Dosage: 5/325 MG
  13. TRIPHASIL-28 [Concomitant]
  14. TRIMOX [Concomitant]
  15. PRENATAL PLUS [Concomitant]
  16. FERROUS SULFATE TAB [Concomitant]
  17. LEXAPRO [Concomitant]

REACTIONS (4)
  - DIABETES MELLITUS [None]
  - HYPERGLYCAEMIA [None]
  - TYPE 2 DIABETES MELLITUS [None]
  - VISION BLURRED [None]
